FAERS Safety Report 18176618 (Version 1)
Quarter: 2020Q3

REPORT INFORMATION
  Report Type: Report from Study
  Country: MX (occurrence: MX)
  Receive Date: 20200820
  Receipt Date: 20200820
  Transmission Date: 20201103
  Serious: Yes (Other)
  Sender: FDA-Public Use
  Company Number: NVSC2020MX228899

PATIENT
  Sex: Female
  Weight: 67 kg

DRUGS (2)
  1. TELMISARTAN. [Suspect]
     Active Substance: TELMISARTAN
     Indication: HYPERTENSION
     Dosage: 1 DF, QD (40 MG)
     Route: 048
     Dates: start: 201810
  2. FEMARA [Suspect]
     Active Substance: LETROZOLE
     Indication: BREAST CANCER
     Dosage: 1 DF, QD (2.5 MG)
     Route: 048
     Dates: start: 20200729

REACTIONS (1)
  - Metastases to thyroid [Recovering/Resolving]
